FAERS Safety Report 8569888-7 (Version None)
Quarter: 2012Q3

REPORT INFORMATION
  Report Type: 
  Country: None (occurrence: None)
  Receive Date: 20120803
  Receipt Date: 20120402
  Transmission Date: 20120928
  Serious: No
  Sender: FDA-Public Use
  Company Number: US-ABBOTT-12P-163-0920530-00

PATIENT
  Sex: Male
  Weight: 95.34 kg

DRUGS (5)
  1. NIASPAN [Suspect]
     Indication: PRODUCT USED FOR UNKNOWN INDICATION
     Dates: start: 20120328, end: 20120330
  2. VITAMIN D [Concomitant]
     Indication: PRODUCT USED FOR UNKNOWN INDICATION
     Dosage: 2000 MG DAILY
  3. UNKNOWN STOOL SOFTENER [Concomitant]
     Indication: PRODUCT USED FOR UNKNOWN INDICATION
  4. SIMVASTATIN [Concomitant]
     Indication: PRODUCT USED FOR UNKNOWN INDICATION
  5. WELCHOL [Concomitant]
     Indication: PRODUCT USED FOR UNKNOWN INDICATION
     Dosage: 625 MG X 3 TABLETS DAILY

REACTIONS (11)
  - NAUSEA [None]
  - HEADACHE [None]
  - DECREASED APPETITE [None]
  - RHINORRHOEA [None]
  - ASTHENIA [None]
  - FAECES DISCOLOURED [None]
  - VOMITING [None]
  - BLOOD GLUCOSE INCREASED [None]
  - PYREXIA [None]
  - HYPERTENSION [None]
  - ABDOMINAL DISCOMFORT [None]
